FAERS Safety Report 16559675 (Version 1)
Quarter: 2019Q3

REPORT INFORMATION
  Report Type: Spontaneous
  Country: US (occurrence: US)
  Receive Date: 20190530
  Receipt Date: 20190530
  Transmission Date: 20191004
  Serious: Yes (Hospitalization)
  Sender: FDA-Public Use
  Company Number: None

PATIENT
  Age: 50 Year
  Sex: Female
  Weight: 102.6 kg

DRUGS (21)
  1. ASPIRIN. [Concomitant]
     Active Substance: ASPIRIN
  2. FOLIC ACID. [Concomitant]
     Active Substance: FOLIC ACID
  3. AMLODIPINE [Concomitant]
     Active Substance: AMLODIPINE BESYLATE
  4. HYDROCHLOROTHIAZIDE. [Concomitant]
     Active Substance: HYDROCHLOROTHIAZIDE
  5. IBUPROFEN. [Concomitant]
     Active Substance: IBUPROFEN
  6. LISINOPRIL. [Concomitant]
     Active Substance: LISINOPRIL
  7. MIRTAZAPINE. [Concomitant]
     Active Substance: MIRTAZAPINE
  8. ONDANSETRON [Concomitant]
     Active Substance: ONDANSETRON
  9. SUCRALFATE. [Concomitant]
     Active Substance: SUCRALFATE
  10. CARBOPLATIN. [Suspect]
     Active Substance: CARBOPLATIN
  11. ALBUTEROL. [Concomitant]
     Active Substance: ALBUTEROL
  12. FAMOTIDINE. [Concomitant]
     Active Substance: FAMOTIDINE
  13. GABAPENTIN. [Concomitant]
     Active Substance: GABAPENTIN
  14. OMEPRAZOLE. [Concomitant]
     Active Substance: OMEPRAZOLE
  15. SERTRALINE [Concomitant]
     Active Substance: SERTRALINE HYDROCHLORIDE
  16. TRAZODONE [Concomitant]
     Active Substance: TRAZODONE HYDROCHLORIDE
  17. DOCUSATE SODIUM. [Concomitant]
     Active Substance: DOCUSATE SODIUM
  18. FERROUS SULFATE. [Concomitant]
     Active Substance: FERROUS SULFATE
  19. LORATADINE. [Concomitant]
     Active Substance: LORATADINE
  20. OXYYCODONE [Concomitant]
  21. QUETIAPINE. [Concomitant]
     Active Substance: QUETIAPINE

REACTIONS (5)
  - Abdominal pain [None]
  - Haemoglobin decreased [None]
  - Haematuria [None]
  - Nephrolithiasis [None]
  - Haematochezia [None]

NARRATIVE: CASE EVENT DATE: 20190515
